FAERS Safety Report 10880687 (Version 3)
Quarter: 2015Q1

REPORT INFORMATION
  Report Type: Spontaneous
  Country: AU (occurrence: None)
  Receive Date: 20150225
  Receipt Date: 20150313
  Transmission Date: 20150721
  Serious: Yes (Hospitalization)
  Sender: FDA-Public Use
  Company Number: KAD201502-000349

PATIENT
  Age: 50 Year
  Sex: Female
  Weight: 57 kg

DRUGS (8)
  1. RABEPRAZOLE [Concomitant]
     Active Substance: RABEPRAZOLE
  2. RIBAVIRIN. [Suspect]
     Active Substance: RIBAVIRIN
     Indication: HEPATITIS C
     Dosage: 400 MG IN AM AND 600 MG IN PM (1000 MG DAILY), 2 IN 1 D, ORAL
     Route: 048
     Dates: start: 20150206, end: 20150219
  3. LACTULOSE. [Concomitant]
     Active Substance: LACTULOSE
  4. FUROSEMIDE. [Concomitant]
     Active Substance: FUROSEMIDE
  5. SPIRONOLACTONE. [Concomitant]
     Active Substance: SPIRONOLACTONE
  6. ABT-333 (DASABUVIR) [Suspect]
     Active Substance: DASABUVIR
     Indication: HEPATITIS C
     Dosage: TABLET, 250 MG TWICE DAILY (500 MG DAILY), ORAL
     Route: 048
     Dates: start: 20150206, end: 20150219
  7. OXYCONTIN [Concomitant]
     Active Substance: OXYCODONE HYDROCHLORIDE
  8. ABT-450/RITONAVIR/ABT-267 (OMBITASVIR/PARITAPREVIR/RITONAVIR) [Suspect]
     Active Substance: OMBITASVIR\PARITAPREVIR\RITONAVIR
     Indication: HEPATITIS C
     Route: 048
     Dates: start: 20150206, end: 20150219

REACTIONS (4)
  - Nausea [None]
  - Hyperbilirubinaemia [None]
  - Jaundice [None]
  - Vomiting [None]

NARRATIVE: CASE EVENT DATE: 20150209
